FAERS Safety Report 6654513-2 (Version None)
Quarter: 2010Q1

REPORT INFORMATION
  Report Type: 
  Country: None (occurrence: None)
  Receive Date: 20100326
  Receipt Date: 20100315
  Transmission Date: 20100710
  Serious: Yes (Other)
  Sender: FDA-Public Use
  Company Number: DE-ELI_LILLY_AND_COMPANY-DE201003004718

PATIENT
  Age: 50 Year
  Sex: Female

DRUGS (5)
  1. FORTEO [Suspect]
     Dosage: UNK, UNKNOWN
     Route: 058
     Dates: start: 20091101
  2. ENOXAPARIN SODIUM [Concomitant]
     Dosage: UNK, UNKNOWN
  3. WATER PILLS [Concomitant]
     Dosage: UNK, UNKNOWN
  4. CALCIUM [Concomitant]
     Dosage: UNK, UNKNOWN
  5. THYRONAJOD [Concomitant]
     Dosage: UNK, UNKNOWN

REACTIONS (2)
  - FATIGUE [None]
  - SPINAL FRACTURE [None]
